FAERS Safety Report 18897809 (Version 1)
Quarter: 2021Q1

REPORT INFORMATION
  Report Type: Spontaneous
  Country: US (occurrence: US)
  Receive Date: 20210212
  Receipt Date: 20210212
  Transmission Date: 20210420
  Serious: No
  Sender: FDA-Public Use
  Company Number: None

PATIENT
  Sex: Male

DRUGS (10)
  1. CLARITIN [Concomitant]
     Active Substance: LORATADINE
  2. HUMIRA [Suspect]
     Active Substance: ADALIMUMAB
     Indication: CROHN^S DISEASE
     Dosage: ?          OTHER FREQUENCY:EVERY OTHER WEEK;?
     Route: 058
     Dates: start: 20170202
  3. AMLODIPINE [Concomitant]
     Active Substance: AMLODIPINE BESYLATE
  4. ASPIRIN. [Concomitant]
     Active Substance: ASPIRIN
  5. MULTIPLE VITAMIN [Concomitant]
     Active Substance: VITAMINS
  6. OXCARBAZEPIN [Concomitant]
     Active Substance: OXCARBAZEPINE
  7. POTASSIUM [Concomitant]
     Active Substance: POTASSIUM
  8. PRILOSEC [Concomitant]
     Active Substance: OMEPRAZOLE MAGNESIUM
  9. ATENOLOL. [Concomitant]
     Active Substance: ATENOLOL
  10. IMURAN [Concomitant]
     Active Substance: AZATHIOPRINE

REACTIONS (2)
  - Colonoscopy [None]
  - Endoscopy [None]
